FAERS Safety Report 24154209 (Version 1)
Quarter: 2024Q3

REPORT INFORMATION
  Report Type: Spontaneous
  Country: US (occurrence: US)
  Receive Date: 20240730
  Receipt Date: 20240730
  Transmission Date: 20241016
  Serious: Yes (Other)
  Sender: JOHNSON AND JOHNSON
  Company Number: US-JNJFOC-20240766505

PATIENT
  Sex: Female

DRUGS (1)
  1. XARELTO [Suspect]
     Active Substance: RIVAROXABAN
     Indication: Product used for unknown indication
     Route: 048

REACTIONS (11)
  - Hydronephrosis [Unknown]
  - Lung neoplasm malignant [Unknown]
  - Pulmonary embolism [Unknown]
  - Metastases to central nervous system [Unknown]
  - Metastases to breast [Unknown]
  - Metastases to liver [Unknown]
  - Small cell lung cancer [Unknown]
  - Anaemia [Unknown]
  - Decreased appetite [Unknown]
  - Hypercholesterolaemia [Unknown]
  - Hypertension [Unknown]
